FAERS Safety Report 10889058 (Version 2)
Quarter: 2015Q1

REPORT INFORMATION
  Report Type: Spontaneous
  Country: US (occurrence: US)
  Receive Date: 20150305
  Receipt Date: 20150320
  Transmission Date: 20150721
  Serious: Yes (Other)
  Sender: FDA-Public Use
  Company Number: US-BAYER-2015-029041

PATIENT
  Age: 84 Year
  Sex: Male
  Weight: 73 kg

DRUGS (7)
  1. LIMBITROL [Concomitant]
     Active Substance: AMITRIPTYLINE\CHLORDIAZEPOXIDE
  2. ALLOPURINOL. [Concomitant]
     Active Substance: ALLOPURINOL
  3. ALEVE PM [Suspect]
     Active Substance: DIPHENHYDRAMINE HYDROCHLORIDE\NAPROXEN SODIUM
     Indication: SLEEP DISORDER THERAPY
     Dosage: 1 DF, ONCE
     Route: 048
     Dates: start: 20150220, end: 20150220
  4. SYNTHROID [Concomitant]
     Active Substance: LEVOTHYROXINE SODIUM
  5. PROCARDIA XL [Concomitant]
     Active Substance: NIFEDIPINE
  6. LASIX [Concomitant]
     Active Substance: FUROSEMIDE
  7. FLOMAX [Concomitant]
     Active Substance: TAMSULOSIN HYDROCHLORIDE

REACTIONS (4)
  - Headache [Recovered/Resolved]
  - Anxiety [Recovered/Resolved]
  - Medication error [None]
  - Palpitations [Recovered/Resolved]

NARRATIVE: CASE EVENT DATE: 20150220
